FAERS Safety Report 25516940 (Version 1)
Quarter: 2025Q3

REPORT INFORMATION
  Report Type: Spontaneous
  Country: AU (occurrence: AU)
  Receive Date: 20250704
  Receipt Date: 20250704
  Transmission Date: 20251020
  Serious: Yes (Hospitalization, Other)
  Sender: ACCORD
  Company Number: AU-Accord-492807

PATIENT
  Age: 4 Decade
  Sex: Female

DRUGS (3)
  1. GLYCOPYRROLATE [Suspect]
     Active Substance: GLYCOPYRROLATE
     Indication: Bradycardia
  2. METARAMINOL [Suspect]
     Active Substance: METARAMINOL
     Indication: Bradycardia
  3. MAGNESIUM SULFATE [Suspect]
     Active Substance: MAGNESIUM SULFATE
     Indication: Pre-eclampsia

REACTIONS (2)
  - Stress cardiomyopathy [Recovered/Resolved]
  - Maternal exposure during delivery [Unknown]
